FAERS Safety Report 9336801 (Version 1)
Quarter: 2013Q2

REPORT INFORMATION
  Report Type: Spontaneous
  Country: PL (occurrence: PL)
  Receive Date: 20130607
  Receipt Date: 20130607
  Transmission Date: 20140414
  Serious: Yes (Hospitalization)
  Sender: FDA-Public Use
  Company Number: PL-BAYER-2013-067707

PATIENT
  Age: 46 Year
  Sex: Female
  Weight: 68 kg

DRUGS (1)
  1. MIRENA [Suspect]
     Dosage: 20 ?G, UNK
     Route: 015

REACTIONS (3)
  - Endometrial hypertrophy [Recovered/Resolved]
  - Uterine polyp [Recovered/Resolved]
  - Uterine perforation [Recovered/Resolved]
